FAERS Safety Report 14476987 (Version 1)
Quarter: 2018Q1

REPORT INFORMATION
  Report Type: Report from Study
  Country: US (occurrence: US)
  Receive Date: 20180201
  Receipt Date: 20180201
  Transmission Date: 20180509
  Serious: No
  Sender: FDA-Public Use
  Company Number: US-EXELIXIS-CABO-17008308

PATIENT
  Sex: Male

DRUGS (11)
  1. COMETRIQ [Suspect]
     Active Substance: CABOZANTINIB S-MALATE
     Dosage: 40 MG, QD
     Route: 048
     Dates: start: 201702
  2. ADVIL [Concomitant]
     Active Substance: IBUPROFEN
  3. CALCIUM [Concomitant]
     Active Substance: CALCIUM
  4. OXYCONTIN [Concomitant]
     Active Substance: OXYCODONE HYDROCHLORIDE
  5. COMETRIQ [Suspect]
     Active Substance: CABOZANTINIB S-MALATE
     Indication: PROSTATE CANCER
     Dosage: 40 MG, QD
     Route: 048
     Dates: start: 20161223
  6. ELIGARD [Concomitant]
     Active Substance: LEUPROLIDE ACETATE
  7. OMEPRAZOLE. [Concomitant]
     Active Substance: OMEPRAZOLE
  8. PREDNISONE. [Concomitant]
     Active Substance: PREDNISONE
  9. FENOFIBRATE. [Concomitant]
     Active Substance: FENOFIBRATE
  10. VITAMIN B [Concomitant]
     Active Substance: VITAMIN B
  11. COMETRIQ [Suspect]
     Active Substance: CABOZANTINIB S-MALATE
     Dosage: 40 MG, ALTERNATING WITH 60 MG
     Route: 048
     Dates: start: 20170201, end: 201702

REACTIONS (3)
  - Confusional state [Recovering/Resolving]
  - Off label use [Unknown]
  - Skin exfoliation [Unknown]
